FAERS Safety Report 7133077-3 (Version None)
Quarter: 2010Q4

REPORT INFORMATION
  Report Type: 
  Country: None (occurrence: None)
  Receive Date: 20101202
  Receipt Date: 20101126
  Transmission Date: 20110411
  Serious: Yes (Hospitalization)
  Sender: FDA-Public Use
  Company Number: B0684439A

PATIENT
  Sex: Female

DRUGS (2)
  1. LAPATINIB [Suspect]
     Indication: BREAST CANCER
     Route: 048
     Dates: start: 20101006
  2. DOCETAXEL [Suspect]
     Indication: BREAST CANCER
     Dates: start: 20101006

REACTIONS (8)
  - DEHYDRATION [None]
  - LEUKOPENIA [None]
  - MALNUTRITION [None]
  - RENAL FAILURE [None]
  - SKIN TOXICITY [None]
  - STAPHYLOCOCCAL INFECTION [None]
  - STOMATITIS [None]
  - THROMBOCYTOPENIA [None]
